FAERS Safety Report 21829597 (Version 2)
Quarter: 2023Q1

REPORT INFORMATION
  Report Type: Spontaneous
  Country: US (occurrence: None)
  Receive Date: 20230106
  Receipt Date: 20230202
  Transmission Date: 20230417
  Serious: Yes (Death, Other)
  Sender: FDA-Public Use
  Company Number: 2023A001592

PATIENT
  Age: 27000 Day
  Sex: Female

DRUGS (1)
  1. TAGRISSO [Suspect]
     Active Substance: OSIMERTINIB
     Route: 048
     Dates: start: 20220331, end: 20220415

REACTIONS (2)
  - Pneumonia bacterial [Fatal]
  - Renal failure [Fatal]

NARRATIVE: CASE EVENT DATE: 20220415
